FAERS Safety Report 22170500 (Version 1)
Quarter: 2023Q2

REPORT INFORMATION
  Report Type: Report from Study
  Country: GR (occurrence: GR)
  Receive Date: 20230404
  Receipt Date: 20230404
  Transmission Date: 20230722
  Serious: Yes (Other)
  Sender: FDA-Public Use
  Company Number: GR-ABBVIE-4714825

PATIENT
  Sex: Male

DRUGS (8)
  1. CARBIDOPA\LEVODOPA [Suspect]
     Active Substance: CARBIDOPA\LEVODOPA
     Indication: Parkinson^s disease
     Dosage: MORNING DOSE: 11.0 ML; CONTINUOUS RATE: 3.4 ML/H; EXTRA DOSE: 1.5 ML
     Dates: start: 20210903
  2. CARBIDOPA\LEVODOPA [Suspect]
     Active Substance: CARBIDOPA\LEVODOPA
     Dosage: MORNING DOSE: 11.0 ML; CONTINUOUS RATE: 3.9 ML/H; EXTRA DOSE: 1.5 ML
     Route: 050
     Dates: start: 20230401
  3. MEMINI [Concomitant]
     Indication: Product used for unknown indication
     Dosage: FORM STRENGTH: 10 MILLIGRAM?FOR THE FIRST WEEK
  4. MEMINI [Concomitant]
     Indication: Product used for unknown indication
     Dosage: FOR THE SECOND WEEK
  5. Enoxaparin (Clexane) [Concomitant]
     Indication: Product used for unknown indication
     Dosage: 0.4 MILLIGRAM
     Route: 048
  6. Rivastigmine (Exelon) [Concomitant]
     Indication: Product used for unknown indication
     Dosage: 13.3 MILLIGRAM
     Route: 062
  7. Gliclazide (Diamicron) [Concomitant]
     Indication: Product used for unknown indication
     Route: 048
  8. Alogliptin +Metformin (Vipdomet) [Concomitant]
     Indication: Product used for unknown indication
     Route: 048

REACTIONS (4)
  - Disease progression [Unknown]
  - Apraxia [Not Recovered/Not Resolved]
  - Decubitus ulcer [Not Recovered/Not Resolved]
  - Weight decreased [Not Recovered/Not Resolved]
